APPROVED DRUG PRODUCT: PERMAPEN
Active Ingredient: PENICILLIN G BENZATHINE
Strength: 600,000 UNITS/ML
Dosage Form/Route: INJECTABLE;INJECTION
Application: N060014 | Product #001
Applicant: CASPER PHARMA LLC
Approved: Approved Prior to Jan 1, 1982 | RLD: No | RS: No | Type: DISCN